FAERS Safety Report 4442407-2 (Version None)
Quarter: 2004Q3

REPORT INFORMATION
  Report Type: 
  Country: None (occurrence: None)
  Receive Date: 20040903
  Receipt Date: 20040706
  Transmission Date: 20050211
  Serious: Yes (Other)
  Sender: FDA-Public Use
  Company Number: 2004UW13868

PATIENT
  Age: 73 Year
  Sex: Female
  Weight: 64.4108 kg

DRUGS (3)
  1. CRESTOR [Suspect]
     Indication: BLOOD CHOLESTEROL INCREASED
     Dates: start: 20040101
  2. ALBUMIN HUMA ^ARMOUR^ [Concomitant]
  3. LOTREL [Concomitant]

REACTIONS (1)
  - HOARSENESS [None]
